FAERS Safety Report 24092266 (Version 14)
Quarter: 2025Q3

REPORT INFORMATION
  Report Type: Other
  Country: US (occurrence: US)
  Receive Date: 20240715
  Receipt Date: 20250923
  Transmission Date: 20251020
  Serious: Yes (Hospitalization, Other)
  Sender: TRAVERE THERAPEUTICS
  Company Number: US-TRAVERE-2024TVT00687

PATIENT
  Age: 59 Year
  Sex: Male

DRUGS (25)
  1. FILSPARI [Suspect]
     Active Substance: SPARSENTAN
     Indication: Illness
     Route: 048
     Dates: start: 20240528
  2. FILSPARI [Suspect]
     Active Substance: SPARSENTAN
     Indication: IgA nephropathy
     Route: 048
  3. FILSPARI [Suspect]
     Active Substance: SPARSENTAN
     Route: 048
     Dates: start: 20240906
  4. PREDNISONE [Suspect]
     Active Substance: PREDNISONE
     Indication: Glomerular filtration rate decreased
     Dates: start: 20240627
  5. PREDNISONE [Suspect]
     Active Substance: PREDNISONE
     Indication: Protein urine
  6. MOUNJARO [Suspect]
     Active Substance: TIRZEPATIDE
     Indication: Product used for unknown indication
     Dates: start: 2024
  7. JARDIANCE [Suspect]
     Active Substance: EMPAGLIFLOZIN
     Indication: Product used for unknown indication
     Dates: start: 202501
  8. LOSARTAN POTASSIUM [Suspect]
     Active Substance: LOSARTAN POTASSIUM
     Indication: Product used for unknown indication
  9. PANTOPRAZOLE [Suspect]
     Active Substance: PANTOPRAZOLE
     Indication: Product used for unknown indication
  10. MELATONIN [Concomitant]
     Active Substance: MELATONIN
  11. VITAMINS [Concomitant]
     Active Substance: VITAMINS
  12. TAMSULOSIN HYDROCHLORIDE [Concomitant]
     Active Substance: TAMSULOSIN HYDROCHLORIDE
  13. CLARITIN [Concomitant]
     Active Substance: LORATADINE
  14. LEVOTHYROXINE SODIUM [Concomitant]
     Active Substance: LEVOTHYROXINE SODIUM
  15. FAMOTIDINE [Concomitant]
     Active Substance: FAMOTIDINE
  16. VITAMIN D3 [Concomitant]
     Active Substance: CHOLECALCIFEROL
  17. CITALOPRAM HYDROBROMIDE [Concomitant]
     Active Substance: CITALOPRAM HYDROBROMIDE
  18. TARPEYO [Concomitant]
     Active Substance: BUDESONIDE
  19. CALCIUM CARBONATE [Concomitant]
     Active Substance: CALCIUM CARBONATE
  20. VITAMIN D [Concomitant]
     Active Substance: VITAMIN D NOS
  21. FAMOTIDINE [Concomitant]
     Active Substance: FAMOTIDINE
  22. BACTRIM [Concomitant]
     Active Substance: SULFAMETHOXAZOLE\TRIMETHOPRIM
  23. FLOMAX [Concomitant]
     Active Substance: TAMSULOSIN HYDROCHLORIDE
  24. CITALOPRAM [Concomitant]
     Active Substance: CITALOPRAM
  25. ALLOPURINOL [Concomitant]
     Active Substance: ALLOPURINOL

REACTIONS (14)
  - Ankle fracture [None]
  - Blood glucose increased [Recovering/Resolving]
  - Malaise [Unknown]
  - Drug interaction [Unknown]
  - Brain fog [None]
  - Fatigue [None]
  - Somnolence [None]
  - Tremor [None]
  - Memory impairment [None]
  - Dizziness [None]
  - Dizziness postural [Unknown]
  - Contraindicated product administered [Unknown]
  - Renal impairment [Unknown]
  - Ill-defined disorder [Unknown]

NARRATIVE: CASE EVENT DATE: 20250301
